FAERS Safety Report 9380805 (Version 2)
Quarter: 2013Q4

REPORT INFORMATION
  Report Type: Spontaneous
  Country: US (occurrence: US)
  Receive Date: 20130702
  Receipt Date: 20131220
  Transmission Date: 20140711
  Serious: Yes (Hospitalization)
  Sender: FDA-Public Use
  Company Number: US-B.I. PHARMACEUTICALS,INC./RIDGEFIELD-2013-BI-18721BP

PATIENT
  Sex: Female
  Weight: 74 kg

DRUGS (7)
  1. PRADAXA [Suspect]
     Indication: ATRIAL FIBRILLATION
     Dosage: 300 MG
     Route: 048
     Dates: start: 20110429, end: 20111015
  2. NORCO [Concomitant]
     Route: 048
  3. OXYBUTYNIN CHLORIDE [Concomitant]
     Dosage: 15 MG
     Route: 048
  4. LISINOPRIL [Concomitant]
     Dosage: 10 MG
     Route: 048
  5. VITAMIND D3 [Concomitant]
     Route: 048
  6. ATARAX [Concomitant]
     Dosage: 25 MG
     Route: 048
  7. CALCIUM + D [Concomitant]
     Dosage: 1200 MG
     Route: 048

REACTIONS (3)
  - Upper gastrointestinal haemorrhage [Recovered/Resolved]
  - Haemorrhagic anaemia [Recovered/Resolved]
  - Contusion [Unknown]
